FAERS Safety Report 9821181 (Version 1)
Quarter: 2014Q1

REPORT INFORMATION
  Report Type: Spontaneous
  Country: US (occurrence: US)
  Receive Date: 20140116
  Receipt Date: 20140116
  Transmission Date: 20141002
  Serious: No
  Sender: FDA-Public Use
  Company Number: US-GILEAD-2010-0034585

PATIENT
  Age: 57 Year
  Sex: Female

DRUGS (2)
  1. LETAIRIS [Suspect]
     Indication: PULMONARY ARTERIAL HYPERTENSION
     Route: 048
     Dates: start: 20101202
  2. ADCIRCA [Concomitant]

REACTIONS (6)
  - Unevaluable event [Unknown]
  - Haemoptysis [Unknown]
  - Headache [Unknown]
  - Swelling [Unknown]
  - Palpitations [Unknown]
  - Fluid retention [Unknown]
